FAERS Safety Report 5296945-3 (Version None)
Quarter: 2007Q1

REPORT INFORMATION
  Report Type: 
  Country: None (occurrence: None)
  Receive Date: 20070201
  Receipt Date: 20061005
  Transmission Date: 20070707
  Serious: No
  Sender: FDA-Public Use
  Company Number: 2006PV022566

PATIENT
  Age: 51 Year
  Sex: Female

DRUGS (3)
  1. BYETTA [Suspect]
     Indication: METABOLIC SYNDROME
     Dosage: SEE IMAGE
     Route: 058
     Dates: start: 20050817, end: 20060917
  2. BYETTA [Suspect]
     Indication: METABOLIC SYNDROME
     Dosage: SEE IMAGE
     Route: 058
     Dates: start: 20060918
  3. METFORMIN HCL [Concomitant]

REACTIONS (3)
  - BLOOD GLUCOSE INCREASED [None]
  - INJECTION SITE PAIN [None]
  - WEIGHT DECREASED [None]
